FAERS Safety Report 9368823 (Version 3)
Quarter: 2015Q2

REPORT INFORMATION
  Report Type: Spontaneous
  Country: BR (occurrence: BR)
  Receive Date: 20130626
  Receipt Date: 20150430
  Transmission Date: 20150821
  Serious: Yes (Hospitalization, Other)
  Sender: FDA-Public Use
  Company Number: BR-AMGEN-BRASP2013044649

PATIENT
  Age: 60 Year
  Sex: Female
  Weight: 118 kg

DRUGS (13)
  1. ENBREL [Suspect]
     Active Substance: ETANERCEPT
     Dosage: 50 MG, ONCE A WEEK (EVERY TUESDAY)
     Route: 065
  2. OMEPRAZOLE. [Concomitant]
     Active Substance: OMEPRAZOLE
     Dosage: UNK
  3. ATENOLOL. [Concomitant]
     Active Substance: ATENOLOL
     Dosage: NIGHT AND MORNING
  4. METHOTREXATE [Concomitant]
     Active Substance: METHOTREXATE
     Dosage: 15 MG (6 TABLETS OF 2.5MG), ONCE A WEEK
     Route: 048
     Dates: start: 20121023
  5. SIMVASTATIN. [Concomitant]
     Active Substance: SIMVASTATIN
     Dosage: 20 MG (ONE TABLET), ONCE A DAY
     Route: 048
     Dates: start: 20120420
  6. SILIMALON [Concomitant]
     Indication: HEPATIC STEATOSIS
     Dosage: 70 MG (ONE TABLET), ONCE A DAY
     Route: 048
  7. CINNARIZINE [Concomitant]
     Active Substance: CINNARIZINE
     Dosage: UNK
  8. LOSARTAN [Concomitant]
     Active Substance: LOSARTAN
     Dosage: 50 MG (ONE TABLET), ONCE A DAY
     Route: 048
     Dates: start: 20110421
  9. VICOG [Concomitant]
     Active Substance: VINPOCETINE
     Indication: MEMORY IMPAIRMENT
     Dosage: UNK
  10. DIURIX                             /00032601/ [Concomitant]
     Dosage: UNK
  11. ENBREL [Suspect]
     Active Substance: ETANERCEPT
     Indication: RHEUMATOID ARTHRITIS
     Dosage: 50 MG, ONCE A WEEK (EVERY TUESDAY)
     Route: 058
     Dates: start: 20121023
  12. ENBREL [Suspect]
     Active Substance: ETANERCEPT
     Dosage: UNK
     Route: 065
  13. LEVOTHYROXINE [Concomitant]
     Active Substance: LEVOTHYROXINE
     Dosage: 50 MG (ONE TABLET), ONCE A DAY
     Route: 048

REACTIONS (13)
  - Pain [Unknown]
  - Bone pain [Unknown]
  - Injection site pain [Not Recovered/Not Resolved]
  - Burning sensation [Unknown]
  - Arthralgia [Unknown]
  - Expired product administered [Unknown]
  - Chest pain [Unknown]
  - Cardiomegaly [Unknown]
  - Drug ineffective [Unknown]
  - Angina pectoris [Unknown]
  - Chest discomfort [Unknown]
  - Pain in extremity [Unknown]
  - Hypoaesthesia [Unknown]

NARRATIVE: CASE EVENT DATE: 20121023
